FAERS Safety Report 8073774-9 (Version None)
Quarter: 2012Q1

REPORT INFORMATION
  Report Type: 
  Country: None (occurrence: None)
  Receive Date: 20120126
  Receipt Date: 20120118
  Transmission Date: 20120608
  Serious: Yes (Hospitalization)
  Sender: FDA-Public Use
  Company Number: CHPA2012US001921

PATIENT
  Age: 58 Year
  Sex: Female

DRUGS (4)
  1. MAALOX ADV MAXIMUM STRENGTH ANTACID/ANTIGAS [Suspect]
     Indication: ANGINA PECTORIS
     Dosage: UNK , UNK
     Route: 048
     Dates: start: 20120103, end: 20120115
  2. REGLAN [Suspect]
     Indication: EPIGASTRIC DISCOMFORT
     Dosage: UNK, UNK
  3. ROLAIDS [Suspect]
     Indication: ANGINA PECTORIS
     Dosage: UNK, UNK
     Dates: start: 20120103
  4. CARAFATE [Suspect]
     Indication: EPIGASTRIC DISCOMFORT
     Dosage: UNK, UNK
     Dates: start: 20120106

REACTIONS (3)
  - HYPOTENSION [None]
  - EPIGASTRIC DISCOMFORT [None]
  - OFF LABEL USE [None]
